FAERS Safety Report 19889180 (Version 1)
Quarter: 2021Q3

REPORT INFORMATION
  Report Type: Spontaneous
  Country: BE (occurrence: BE)
  Receive Date: 20210927
  Receipt Date: 20210927
  Transmission Date: 20211014
  Serious: Yes (Hospitalization, Other)
  Sender: FDA-Public Use
  Company Number: BE-PFM-2021-09231

PATIENT

DRUGS (4)
  1. AMOXICILLIN. [Concomitant]
     Active Substance: AMOXICILLIN
     Indication: AMNIOTIC CAVITY INFECTION
     Route: 042
     Dates: start: 2020
  2. SURFACTANT [Concomitant]
     Indication: PRODUCT USED FOR UNKNOWN INDICATION
     Route: 065
     Dates: start: 2020
  3. AMIKACIN. [Concomitant]
     Active Substance: AMIKACIN
     Indication: AMNIOTIC CAVITY INFECTION
     Route: 042
     Dates: start: 2020
  4. PROPRANOLOL HYDROCHLORIDE. [Suspect]
     Active Substance: PROPRANOLOL HYDROCHLORIDE
     Indication: LONG QT SYNDROME
     Route: 048
     Dates: start: 2020, end: 2020

REACTIONS (1)
  - Necrotising enterocolitis neonatal [Unknown]

NARRATIVE: CASE EVENT DATE: 2020
